FAERS Safety Report 6056324-8 (Version None)
Quarter: 2009Q1

REPORT INFORMATION
  Report Type: 
  Country: None (occurrence: None)
  Receive Date: 20090129
  Receipt Date: 20090119
  Transmission Date: 20090719
  Serious: Yes (Hospitalization)
  Sender: FDA-Public Use
  Company Number: US-ABBOTT-09P-163-0498582-00

PATIENT
  Sex: Female
  Weight: 68.1 kg

DRUGS (11)
  1. ZEMPLAR 1MCG [Suspect]
     Indication: HYPERPARATHYROIDISM
     Dates: start: 20080901
  2. INSULIN [Concomitant]
     Indication: DRUG USE FOR UNKNOWN INDICATION
  3. VISTARIL [Concomitant]
     Indication: DRUG USE FOR UNKNOWN INDICATION
  4. FLEXERIL [Concomitant]
     Indication: DRUG USE FOR UNKNOWN INDICATION
  5. NEPHEREX [Concomitant]
     Indication: DRUG USE FOR UNKNOWN INDICATION
  6. PROZAC [Concomitant]
     Indication: DRUG USE FOR UNKNOWN INDICATION
  7. CARVEDILOL [Concomitant]
     Indication: DRUG USE FOR UNKNOWN INDICATION
  8. NORVASC [Concomitant]
     Indication: DRUG USE FOR UNKNOWN INDICATION
  9. PROTONIX [Concomitant]
     Indication: DRUG USE FOR UNKNOWN INDICATION
  10. DETROL LA [Concomitant]
     Indication: DRUG USE FOR UNKNOWN INDICATION
  11. CLONOPIN [Concomitant]
     Indication: DRUG USE FOR UNKNOWN INDICATION

REACTIONS (4)
  - BLOOD CALCIUM DECREASED [None]
  - BLOOD ELECTROLYTES DECREASED [None]
  - BLOOD MAGNESIUM DECREASED [None]
  - NAUSEA [None]
